FAERS Safety Report 8145810-2 (Version None)
Quarter: 2012Q1

REPORT INFORMATION
  Report Type: 
  Country: None (occurrence: None)
  Receive Date: 20120217
  Receipt Date: 20110408
  Transmission Date: 20120608
  Serious: No
  Sender: FDA-Public Use
  Company Number: US-ABBOTT-11P-163-0717610-00

PATIENT
  Sex: Female
  Weight: 83.99 kg

DRUGS (1)
  1. SIMCOR [Suspect]
     Indication: PRODUCT USED FOR UNKNOWN INDICATION
     Dosage: DAILY AT BEDTIME
     Dates: start: 20110404

REACTIONS (6)
  - RASH PAPULAR [None]
  - PRURITUS [None]
  - PARAESTHESIA [None]
  - ILL-DEFINED DISORDER [None]
  - FLUSHING [None]
  - RASH MACULAR [None]
